FAERS Safety Report 9953270 (Version 1)
Quarter: 2014Q1

REPORT INFORMATION
  Report Type: Report from Study
  Country: US (occurrence: US)
  Receive Date: 20140304
  Receipt Date: 20140304
  Transmission Date: 20141002
  Serious: No
  Sender: FDA-Public Use
  Company Number: US-ABBVIE-13P-163-1072791-00

PATIENT
  Age: 16 Year
  Sex: Female
  Weight: 59.02 kg

DRUGS (4)
  1. HUMIRA [Suspect]
     Indication: CROHN^S DISEASE
     Dates: start: 201212, end: 201302
  2. HUMIRA [Suspect]
     Dates: start: 20130325
  3. FOLIC ACID [Concomitant]
     Indication: VITAMIN SUPPLEMENTATION
  4. APRI BIRTH CONTROL PILL [Concomitant]
     Indication: OVARIAN CYST

REACTIONS (5)
  - Off label use [Unknown]
  - Infectious mononucleosis [Recovering/Resolving]
  - Pharyngitis [Recovering/Resolving]
  - Fatigue [Recovering/Resolving]
  - Ear infection [Recovering/Resolving]
